FAERS Safety Report 14148054 (Version 1)
Quarter: 2017Q4

REPORT INFORMATION
  Report Type: Spontaneous
  Country: US (occurrence: US)
  Receive Date: 20171101
  Receipt Date: 20171101
  Transmission Date: 20180321
  Serious: Yes (Disabling)
  Sender: FDA-Public Use
  Company Number: US-PFIZER INC-2017467338

PATIENT
  Age: 67 Year
  Sex: Female
  Weight: 83.91 kg

DRUGS (3)
  1. LYRICA [Suspect]
     Active Substance: PREGABALIN
     Indication: FIBROMYALGIA
     Dosage: ONLY TAKING 1 A DAY
     Dates: start: 201709
  2. LYRICA [Suspect]
     Active Substance: PREGABALIN
     Indication: DIABETIC NEUROPATHY
     Dosage: SHE WAS PRESCRIBED TO TAKE 2 CAPSULES A DAY
     Dates: start: 20170403
  3. LYRICA [Suspect]
     Active Substance: PREGABALIN
     Dosage: HER DOCTOR SAID TO INCREASE IT TO 4-5 A DAY

REACTIONS (3)
  - Off label use [Unknown]
  - Drug ineffective [Not Recovered/Not Resolved]
  - Intentional product use issue [Not Recovered/Not Resolved]

NARRATIVE: CASE EVENT DATE: 201709
